FAERS Safety Report 26182439 (Version 1)
Quarter: 2025Q4

REPORT INFORMATION
  Report Type: Spontaneous
  Country: US (occurrence: US)
  Receive Date: 20251221
  Receipt Date: 20251221
  Transmission Date: 20260118
  Serious: No
  Sender: ACCORD
  Company Number: US-COHERUS BIOSCIENCES, INC-2025-COH-US000001

PATIENT
  Age: 57 Year
  Sex: Female

DRUGS (4)
  1. UDENYCA [Suspect]
     Active Substance: PEGFILGRASTIM-CBQV
     Indication: White blood cell count increased
     Dosage: 6 MG, Q3WEEKS, 6 MG/0.6 ML
     Route: 058
     Dates: start: 20241227
  2. DEXAMETHASONE SODIUM SUCCINATE [Concomitant]
     Active Substance: DEXAMETHASONE SODIUM SUCCINATE
     Dosage: UNK
     Dates: start: 20241226
  3. OLANZAPINE [Concomitant]
     Active Substance: OLANZAPINE
     Indication: Nausea
     Dosage: UNK
  4. CLARITIN [Concomitant]
     Active Substance: LORATADINE
     Indication: Bone pain
     Dosage: UNK

REACTIONS (4)
  - Rash [Recovered/Resolved]
  - Flushing [Recovered/Resolved]
  - Feeling hot [Recovered/Resolved]
  - Rash [Recovered/Resolved]

NARRATIVE: CASE EVENT DATE: 20241227
